FAERS Safety Report 16641944 (Version 1)
Quarter: 2019Q3

REPORT INFORMATION
  Report Type: Spontaneous
  Country: US (occurrence: US)
  Receive Date: 20190614
  Receipt Date: 20190614
  Transmission Date: 20191004
  Serious: No
  Sender: FDA-Public Use
  Company Number: None

PATIENT
  Age: 62 Year
  Sex: Female

DRUGS (2)
  1. NINLARO [Suspect]
     Active Substance: IXAZOMIB CITRATE
     Indication: PLASMA CELL MYELOMA
     Dosage: ?          OTHER FREQUENCY:DAY 1 ,8, AND 15;?
     Route: 048
     Dates: start: 20190608
  2. DEXAMETHASONE 4MG NONE [Suspect]
     Active Substance: DEXAMETHASONE
     Indication: PLASMA CELL MYELOMA
     Dosage: ?          OTHER FREQUENCY:DAY 1, 8, 15, 22;?
     Route: 048
     Dates: start: 20190608

REACTIONS (3)
  - Photophobia [None]
  - Head discomfort [None]
  - Depressed level of consciousness [None]

NARRATIVE: CASE EVENT DATE: 20190608
